FAERS Safety Report 5095378-2 (Version None)
Quarter: 2006Q3

REPORT INFORMATION
  Report Type: 
  Country: None (occurrence: None)
  Receive Date: 20060731
  Receipt Date: 20060427
  Transmission Date: 20061208
  Serious: No
  Sender: FDA-Public Use
  Company Number: 2006PV012862

PATIENT
  Age: 49 Year
  Sex: Female

DRUGS (4)
  1. BYETTA [Suspect]
     Indication: DIABETES MELLITUS NON-INSULIN-DEPENDENT
     Dosage: 5 MCG;BID;SC
     Route: 058
     Dates: start: 20060312
  2. AMARYL [Concomitant]
  3. METFORMIN [Concomitant]
  4. PROZAC [Concomitant]

REACTIONS (11)
  - AGITATION [None]
  - BRONCHITIS [None]
  - COUGH [None]
  - EAR PAIN [None]
  - ENERGY INCREASED [None]
  - INSOMNIA [None]
  - NASOPHARYNGITIS [None]
  - PAIN [None]
  - PALPITATIONS [None]
  - PHARYNGOLARYNGEAL PAIN [None]
  - PYREXIA [None]
